FAERS Safety Report 6470659-6 (Version None)
Quarter: 2009Q4

REPORT INFORMATION
  Report Type: 
  Country: None (occurrence: None)
  Receive Date: 20091203
  Receipt Date: 20091123
  Transmission Date: 20100525
  Serious: Yes (Hospitalization, Other)
  Sender: FDA-Public Use
  Company Number: GB-PFIZER INC-2009301796

PATIENT
  Age: 66 Year
  Sex: Male

DRUGS (6)
  1. EPIRUBICIN HCL [Suspect]
     Indication: GASTRIC CANCER
     Dosage: UNK
     Dates: start: 20080709
  2. OXALIPLATIN [Suspect]
     Indication: GASTRIC CANCER
     Dosage: UNK
     Dates: start: 20080709
  3. CAPECITABINE [Suspect]
     Indication: GASTRIC CANCER
     Dosage: UNK
     Dates: start: 20080709
  4. PANITUMUMAB [Suspect]
     Indication: GASTRIC CANCER
     Dosage: UNK
     Dates: start: 20080709
  5. METOCLOPRAMIDE [Concomitant]
     Dosage: 10 MG, AS NEEDED
  6. PARACETAMOL [Concomitant]
     Dosage: 1 DF, AS NEEDED

REACTIONS (7)
  - ARRHYTHMIA SUPRAVENTRICULAR [None]
  - ATRIAL FIBRILLATION [None]
  - DYSPNOEA [None]
  - INFECTION [None]
  - LETHARGY [None]
  - NODAL ARRHYTHMIA [None]
  - PYREXIA [None]
